FAERS Safety Report 20230081 (Version 1)
Quarter: 2021Q4

REPORT INFORMATION
  Report Type: Spontaneous
  Country: DE (occurrence: DE)
  Receive Date: 20211226
  Receipt Date: 20211226
  Transmission Date: 20220303
  Serious: Yes (Hospitalization)
  Sender: FDA-Public Use
  Company Number: DE-ADRED-06091-04

PATIENT
  Age: 74 Year
  Sex: Male

DRUGS (17)
  1. TORSEMIDE [Suspect]
     Active Substance: TORSEMIDE
     Dosage: 10 MG, 1-0.5-0-0
     Route: 048
  2. RAMIPRIL [Suspect]
     Active Substance: RAMIPRIL
     Dosage: 5 MILLIGRAM DAILY; 1-0-0-0
     Route: 048
  3. PANTOPRAZOLE SODIUM [Concomitant]
     Active Substance: PANTOPRAZOLE SODIUM
     Dosage: 40 MILLIGRAM DAILY; 1-0-0-0
     Route: 048
  4. PHENPROCOUMON [Concomitant]
     Active Substance: PHENPROCOUMON
     Dosage: 3 MG, ACCORDING TO INR
     Route: 048
  5. Eryfer [Concomitant]
     Dosage: 100 MILLIGRAM DAILY; 1-0-0-0; ERYFER 100MG
     Route: 048
  6. BROMAZEPAM [Concomitant]
     Active Substance: BROMAZEPAM
     Dosage: 6 MG, AT NIGHT IF NEEDED
     Route: 048
  7. BENSERAZIDE\LEVODOPA [Concomitant]
     Active Substance: BENSERAZIDE\LEVODOPA
     Dosage: 1 DOSAGE FORMS DAILY; 25|100 MG, 1-0-0-0
     Route: 048
  8. BENSERAZIDE\LEVODOPA [Concomitant]
     Active Substance: BENSERAZIDE\LEVODOPA
     Dosage: 25|100 MG, 1-1-1-0, TABLETTEN
     Route: 048
  9. TAMSULOSIN [Concomitant]
     Active Substance: TAMSULOSIN
     Dosage: .4 MILLIGRAM DAILY; 0-0-1-0
     Route: 048
  10. METFORMIN [Concomitant]
     Active Substance: METFORMIN HYDROCHLORIDE
     Dosage: 1000 MILLIGRAM DAILY; 1-0-1-0
     Route: 048
  11. CARBIDOPA\LEVODOPA [Concomitant]
     Active Substance: CARBIDOPA\LEVODOPA
     Dosage: 1 DOSAGE FORMS DAILY; 50|200 MG, 0-0-0-1
     Route: 048
  12. ROTIGOTINE [Concomitant]
     Active Substance: ROTIGOTINE
     Dosage: 4 MILLIGRAM DAILY;
     Route: 048
  13. NITRENDIPINE [Concomitant]
     Active Substance: NITRENDIPINE
     Dosage: 20 MILLIGRAM DAILY; 1-0-1-0
     Route: 048
  14. BISOPROLOL [Concomitant]
     Active Substance: BISOPROLOL
     Dosage: 10 MILLIGRAM DAILY; 1-0-1-0
     Route: 048
  15. SITAGLIPTIN [Concomitant]
     Active Substance: SITAGLIPTIN
     Dosage: .5 DOSAGE FORMS DAILY; 100 MG, 0.5-0-0-0
     Route: 048
  16. ALLOPURINOL [Concomitant]
     Active Substance: ALLOPURINOL
     Dosage: 300 MILLIGRAM DAILY; 1-0-0-0
     Route: 048
  17. METAMIZOL [Concomitant]
     Active Substance: METAMIZOLE SODIUM
     Dosage: 500 MG, UP TO FOUR TIMES A DAY IF NECESSARY
     Route: 048

REACTIONS (2)
  - Oedema peripheral [Recovered/Resolved]
  - Hyponatraemia [Recovering/Resolving]
